FAERS Safety Report 7308411-1 (Version None)
Quarter: 2011Q1

REPORT INFORMATION
  Report Type: 
  Country: None (occurrence: None)
  Receive Date: 20110211
  Receipt Date: 20110131
  Transmission Date: 20110831
  Serious: Yes (Hospitalization)
  Sender: FDA-Public Use
  Company Number: 025166

PATIENT
  Sex: Male

DRUGS (1)
  1. KEPPRA [Suspect]
     Indication: EPILEPSY
     Dosage: (500 MG BID ORAL) ; (750 MG BID ORAL)
     Route: 048

REACTIONS (3)
  - APRAXIA [None]
  - HALLUCINATION [None]
  - CONFUSIONAL STATE [None]
